FAERS Safety Report 4833637-6 (Version None)
Quarter: 2005Q4

REPORT INFORMATION
  Report Type: 
  Country: None (occurrence: None)
  Receive Date: 20051114
  Receipt Date: 20051101
  Transmission Date: 20060501
  Serious: Yes (Hospitalization, Other)
  Sender: FDA-Public Use
  Company Number: HQWYE382903NOV05

PATIENT
  Age: 40 Year
  Sex: Female

DRUGS (6)
  1. EFFEXOR XR [Suspect]
     Dosage: 150 MG 1X PER 1 DAY
     Dates: start: 20041101
  2. BETASERON [Concomitant]
  3. HYDROCHLOROTHIAZIDE [Concomitant]
  4. UNSPECIFIED THYRROID MEDICATION (UNSPECIFIED THYROID MEDICATION) [Concomitant]
  5. DARVICET-N (DEXTROPROPOXYPHENE/PARACETAMOL) [Concomitant]
  6. SKELAXIN [Concomitant]

REACTIONS (2)
  - SUICIDAL IDEATION [None]
  - SURGERY [None]
